FAERS Safety Report 8601021-5 (Version None)
Quarter: 2012Q3

REPORT INFORMATION
  Report Type: 
  Country: None (occurrence: None)
  Receive Date: 20120817
  Receipt Date: 20120809
  Transmission Date: 20120928
  Serious: Yes (Hospitalization)
  Sender: FDA-Public Use
  Company Number: US-ASTELLAS-2012US005420

PATIENT
  Sex: Female

DRUGS (4)
  1. CISPLATIN [Suspect]
     Indication: PRODUCT USED FOR UNKNOWN INDICATION
     Dosage: UNK
     Route: 065
     Dates: start: 20120503
  2. ERLOTINIB HYDROCHLORIDE [Suspect]
     Indication: TONGUE NEOPLASM MALIGNANT STAGE UNSPECIFIED
     Dosage: UNK
     Route: 048
     Dates: start: 20120503
  3. ERLOTINIB HYDROCHLORIDE [Suspect]
     Dosage: 150 MG, UID/QD
     Route: 051
  4. DOCETAXEL [Suspect]
     Indication: TONGUE NEOPLASM MALIGNANT STAGE UNSPECIFIED
     Dosage: UNK
     Route: 065
     Dates: start: 20120503

REACTIONS (20)
  - CLOSTRIDIUM DIFFICILE COLITIS [None]
  - HIATUS HERNIA [None]
  - DEHYDRATION [None]
  - DIARRHOEA [None]
  - GASTRITIS [None]
  - ANAEMIA [None]
  - ASTHENIA [None]
  - ERYTHEMA [None]
  - HYPOMAGNESAEMIA [None]
  - RENAL FAILURE ACUTE [None]
  - ABDOMINAL PAIN [None]
  - DEVICE LEAKAGE [None]
  - DUODENITIS [None]
  - HYPOKALAEMIA [None]
  - CELLULITIS STAPHYLOCOCCAL [None]
  - ELECTROLYTE IMBALANCE [None]
  - MALNUTRITION [None]
  - OFF LABEL USE [None]
  - GASTRIC ULCER HAEMORRHAGE [None]
  - POSTOPERATIVE WOUND INFECTION [None]
